FAERS Safety Report 7231115-0 (Version None)
Quarter: 2011Q1

REPORT INFORMATION
  Report Type: 
  Country: None (occurrence: None)
  Receive Date: 20110118
  Receipt Date: 20110107
  Transmission Date: 20110831
  Serious: Yes (Other)
  Sender: FDA-Public Use
  Company Number: US-ROCHE-753124

PATIENT
  Age: 54 Year

DRUGS (2)
  1. AVASTIN [Suspect]
     Indication: BREAST CANCER
     Route: 065
     Dates: end: 20100901
  2. TAXOL [Suspect]
     Indication: BREAST CANCER
     Route: 065
     Dates: end: 20100901

REACTIONS (4)
  - MUSCULAR WEAKNESS [None]
  - FACIAL PARESIS [None]
  - MYDRIASIS [None]
  - DIPLOPIA [None]
